FAERS Safety Report 6417443-7 (Version None)
Quarter: 2009Q4

REPORT INFORMATION
  Report Type: 
  Country: None (occurrence: None)
  Receive Date: 20091027
  Receipt Date: 20091027
  Transmission Date: 20100525
  Serious: Yes (Other)
  Sender: FDA-Public Use
  Company Number: None

PATIENT
  Age: 79 Year
  Sex: Female
  Weight: 56.6996 kg

DRUGS (1)
  1. ACTONEL [Suspect]
     Indication: BONE DISORDER
     Dosage: 1 PILL ONCE A MONTH
     Dates: start: 20091001, end: 20091001

REACTIONS (5)
  - BACK PAIN [None]
  - BONE PAIN [None]
  - MUSCLE SPASMS [None]
  - MUSCLE SWELLING [None]
  - PAIN [None]
